FAERS Safety Report 12039610 (Version 1)
Quarter: 2016Q1

REPORT INFORMATION
  Report Type: Report from Study
  Country: BR (occurrence: BR)
  Receive Date: 20160208
  Receipt Date: 20160208
  Transmission Date: 20160526
  Serious: Yes (Hospitalization, Other)
  Sender: FDA-Public Use
  Company Number: PHHY2016BR007441

PATIENT
  Age: 33 Year
  Sex: Female
  Weight: 57 kg

DRUGS (1)
  1. GILENYA [Suspect]
     Active Substance: FINGOLIMOD HYDROCHLORIDE
     Indication: MULTIPLE SCLEROSIS
     Dosage: 0.5 MG, QD
     Route: 048
     Dates: start: 20150301

REACTIONS (6)
  - Hypokinesia [Unknown]
  - Hypokinesia [Recovered/Resolved]
  - Alopecia [Recovered/Resolved]
  - Multiple sclerosis relapse [Recovered/Resolved]
  - Multiple sclerosis relapse [Recovering/Resolving]
  - Arthralgia [Recovering/Resolving]

NARRATIVE: CASE EVENT DATE: 201503
